FAERS Safety Report 16517406 (Version 1)
Quarter: 2019Q3

REPORT INFORMATION
  Report Type: Spontaneous
  Country: US (occurrence: US)
  Receive Date: 20190702
  Receipt Date: 20190702
  Transmission Date: 20191004
  Serious: No
  Sender: FDA-Public Use
  Company Number: US-SEBELA IRELAND LIMITED-2019SEB00142

PATIENT
  Sex: Female

DRUGS (2)
  1. PRAMOSONE [Suspect]
     Active Substance: HYDROCORTISONE ACETATE\PRAMOXINE HYDROCHLORIDE
     Indication: VULVOVAGINAL DISCOMFORT
  2. PRAMOSONE [Suspect]
     Active Substance: HYDROCORTISONE ACETATE\PRAMOXINE HYDROCHLORIDE
     Indication: VULVOVAGINAL ERYTHEMA
     Dosage: AROUND VAGINAL AREA
     Route: 061

REACTIONS (1)
  - Hypersensitivity [Not Recovered/Not Resolved]
